FAERS Safety Report 26214666 (Version 1)
Quarter: 2025Q4

REPORT INFORMATION
  Report Type: Spontaneous
  Country: EU (occurrence: EU)
  Receive Date: 20251230
  Receipt Date: 20251230
  Transmission Date: 20260118
  Serious: Yes (Other)
  Sender: MERCK SHARP & DOHME LLC
  Company Number: None

PATIENT
  Age: 54 Year
  Sex: Female
  Weight: 81 kg

DRUGS (8)
  1. APREPITANT [Suspect]
     Active Substance: APREPITANT
     Indication: Antiemetic supportive care
     Dosage: 125 MG J1 THEN 80 MG
     Route: 048
     Dates: start: 20251121, end: 20251124
  2. APREPITANT [Suspect]
     Active Substance: APREPITANT
     Indication: Antiemetic supportive care
     Dosage: 125 MG J1 THEN 80 MG
     Route: 048
     Dates: start: 20251120, end: 20251120
  3. CYTARABINE [Suspect]
     Active Substance: CYTARABINE
     Indication: Transplant
     Dosage: 395 MG
     Route: 042
     Dates: start: 20251120, end: 20251123
  4. PANTOPRAZOLE [Suspect]
     Active Substance: PANTOPRAZOLE
     Indication: Prophylaxis against gastrointestinal ulcer
     Dosage: 40 MG IN THE MORNING
     Route: 042
     Dates: end: 20251124
  5. ETOPOSIDE PHOSPHATE [Suspect]
     Active Substance: ETOPOSIDE PHOSPHATE
     Indication: Transplant
     Dosage: 198 MG
     Route: 042
     Dates: start: 20251121, end: 20251123
  6. VALACYCLOVIR HYDROCHLORIDE [Suspect]
     Active Substance: VALACYCLOVIR HYDROCHLORIDE
     Indication: Supportive care
     Dosage: 500 MG 2 / D
     Route: 048
     Dates: start: 20251120, end: 20251124
  7. CARMUSTINE [Suspect]
     Active Substance: CARMUSTINE
     Indication: Transplant
     Dosage: 583.33 MG
     Route: 042
     Dates: start: 20251120, end: 20251120
  8. ACETAMINOPHEN [Suspect]
     Active Substance: ACETAMINOPHEN
     Indication: Pain
     Dosage: 1 G IF NEEDED
     Route: 042
     Dates: start: 20251121, end: 20251121

REACTIONS (1)
  - Liver function test abnormal [Recovering/Resolving]

NARRATIVE: CASE EVENT DATE: 20251122
